FAERS Safety Report 25287181 (Version 1)
Quarter: 2025Q2

REPORT INFORMATION
  Report Type: Spontaneous
  Country: VE (occurrence: VE)
  Receive Date: 20250509
  Receipt Date: 20250509
  Transmission Date: 20250716
  Serious: Yes (Other)
  Sender: NOVARTIS
  Company Number: VE-002147023-NVSC2021VE198957

PATIENT
  Sex: Female

DRUGS (1)
  1. GLIVEC [Suspect]
     Active Substance: IMATINIB MESYLATE
     Indication: Chronic myeloid leukaemia
     Route: 065

REACTIONS (12)
  - Meniscus injury [Unknown]
  - Neuritis [Unknown]
  - Feeling cold [Unknown]
  - Blood electrolytes decreased [Unknown]
  - Human anaplasmosis [Unknown]
  - Hyperinsulinism [Unknown]
  - Ehrlichia test positive [Unknown]
  - Myalgia [Unknown]
  - Tremor [Unknown]
  - Tachycardia [Unknown]
  - Arthralgia [Unknown]
  - Bronchitis [Unknown]
